FAERS Safety Report 5368542-2 (Version None)
Quarter: 2007Q2

REPORT INFORMATION
  Report Type: 
  Country: None (occurrence: None)
  Receive Date: 20070625
  Receipt Date: 20070614
  Transmission Date: 20071010
  Serious: Yes (Hospitalization)
  Sender: FDA-Public Use
  Company Number: US-JNJFOC-20070603824

PATIENT
  Sex: Female
  Weight: 77.11 kg

DRUGS (1)
  1. DURAGESIC-100 [Suspect]
     Indication: PAIN
     Dosage: 2X 100 UG/HR
     Route: 062

REACTIONS (7)
  - BREAST DISCHARGE [None]
  - BREAST DISORDER [None]
  - BREAST ENLARGEMENT [None]
  - BREAST PAIN [None]
  - CONDITION AGGRAVATED [None]
  - KIDNEY INFECTION [None]
  - NEPHROLITHIASIS [None]
